FAERS Safety Report 8042900-X (Version None)
Quarter: 2012Q1

REPORT INFORMATION
  Report Type: 
  Country: None (occurrence: None)
  Receive Date: 20120112
  Receipt Date: 20120103
  Transmission Date: 20120608
  Serious: Yes (Hospitalization)
  Sender: FDA-Public Use
  Company Number: US-UCBSA-048600

PATIENT
  Age: 28 Year
  Sex: Female

DRUGS (5)
  1. CIMZIA [Suspect]
     Indication: CROHN'S DISEASE
     Dosage: DOSE: 400 MG
     Route: 058
     Dates: start: 20111216, end: 20111216
  2. LUTRA [Concomitant]
     Indication: CONTRACEPTION
     Dosage: 1 TABLET
     Route: 048
  3. IBUPROFEN (ADVIL) [Concomitant]
     Indication: PAIN
     Dosage: 2 TABLET AS NECESSARY
     Route: 048
  4. CIMZIA [Suspect]
     Route: 058
     Dates: start: 20090101, end: 20110801
  5. MELATONIN [Concomitant]
     Route: 048

REACTIONS (3)
  - INFLUENZA [None]
  - RECTAL ABSCESS [None]
  - BODY TEMPERATURE INCREASED [None]
